FAERS Safety Report 5900340-0 (Version None)
Quarter: 2008Q3

REPORT INFORMATION
  Report Type: 
  Country: None (occurrence: None)
  Receive Date: 20080926
  Receipt Date: 20080915
  Transmission Date: 20090109
  Serious: Yes (Hospitalization)
  Sender: FDA-Public Use
  Company Number: FR-ELI_LILLY_AND_COMPANY-FR200808001256

PATIENT
  Age: 85 Year
  Sex: Female
  Weight: 66 kg

DRUGS (11)
  1. FORTEO [Suspect]
     Indication: OSTEOPOROSIS
     Dosage: 20 UG, DAILY (1/D)
     Route: 058
     Dates: start: 20070327
  2. ALPRAZOLAM [Concomitant]
     Dosage: UNK, UNKNOWN
     Route: 065
  3. ASPIRIN [Concomitant]
     Dosage: UNK, UNKNOWN
     Route: 065
  4. ACETAMINOPHEN AND CODEINE PHOSPHATE [Concomitant]
     Dosage: UNK, UNKNOWN
     Route: 065
  5. HYZAAR [Concomitant]
     Dosage: UNK, UNKNOWN
     Route: 065
  6. MIANSERIN [Concomitant]
     Dosage: UNK, UNKNOWN
     Route: 065
  7. IKOREL [Concomitant]
     Dosage: UNK, UNKNOWN
     Route: 065
  8. DESLORATADINE [Concomitant]
     Dosage: UNK, UNKNOWN
     Route: 065
  9. TELFAST /01314201/ [Concomitant]
     Dosage: UNK, UNKNOWN
     Route: 065
  10. BETATOP [Concomitant]
     Dosage: UNK, UNKNOWN
     Route: 065
  11. CIPROFLOXACIN HYDROCHLORIDE [Concomitant]
     Dosage: UNK, UNKNOWN
     Route: 065

REACTIONS (1)
  - ABSCESS INTESTINAL [None]
